FAERS Safety Report 11379351 (Version 2)
Quarter: 2015Q4

REPORT INFORMATION
  Report Type: Report from Study
  Country: MX (occurrence: MX)
  Receive Date: 20150813
  Receipt Date: 20151204
  Transmission Date: 20160304
  Serious: No
  Sender: FDA-Public Use
  Company Number: MX-TAKEDA-2015TJP014929

PATIENT
  Age: 25 Year
  Sex: Male

DRUGS (1)
  1. PIOGLITAZONE, METFORMIN [Suspect]
     Active Substance: METFORMIN HYDROCHLORIDE\PIOGLITAZONE HYDROCHLORIDE
     Indication: HEPATIC STEATOSIS
     Dosage: UNK
     Route: 048
     Dates: start: 20150416, end: 201507

REACTIONS (9)
  - Blepharospasm [Unknown]
  - Hypertension [Unknown]
  - Paraesthesia [Unknown]
  - Tachycardia [Unknown]
  - Anxiety [Unknown]
  - Agitation [Unknown]
  - Nervousness [Unknown]
  - Fear [Unknown]
  - Off label use [Unknown]

NARRATIVE: CASE EVENT DATE: 20150416
